FAERS Safety Report 6495672-4 (Version None)
Quarter: 2009Q4

REPORT INFORMATION
  Report Type: 
  Country: None (occurrence: None)
  Receive Date: 20091214
  Receipt Date: 20090730
  Transmission Date: 20100525
  Serious: No
  Sender: FDA-Public Use
  Company Number: US-BRISTOL-MYERS SQUIBB COMPANY-14722615

PATIENT
  Age: 53 Year
  Sex: Female
  Weight: 154 kg

DRUGS (7)
  1. ABILIFY [Suspect]
     Indication: DEPRESSION
     Dosage: STARTED WITH 10MG, THEN INCREASED TO 15 MG
     Dates: start: 20090101, end: 20090101
  2. LISINOPRIL [Concomitant]
  3. METOPROLOL [Concomitant]
  4. HYDROCHLOROTHIAZIDE [Concomitant]
  5. GLUCOPHAGE [Concomitant]
  6. LEXAPRO [Concomitant]
  7. SYMBYAX [Concomitant]

REACTIONS (2)
  - FATIGUE [None]
  - HALLUCINATION [None]
